FAERS Safety Report 16458966 (Version 1)
Quarter: 2019Q2

REPORT INFORMATION
  Report Type: Spontaneous
  Country: US (occurrence: US)
  Receive Date: 20190620
  Receipt Date: 20190620
  Transmission Date: 20190711
  Serious: No
  Sender: FDA-Public Use
  Company Number: US-THERAPEUTICSMD-2019TMD01091

PATIENT
  Age: 80 Year
  Sex: Female
  Weight: 68.03 kg

DRUGS (4)
  1. IMVEXXY [Suspect]
     Active Substance: ESTRADIOL
     Dosage: 10 ?G, 3X/WEEK BEFORE BED (MONDAY, WEDNESDAY, FRIDAY)
     Route: 067
     Dates: start: 20190520
  2. IMVEXXY [Suspect]
     Active Substance: ESTRADIOL
     Indication: OESTROGEN DEFICIENCY
     Dosage: 10 ?G, 1X/DAY BEFORE BED
     Route: 067
     Dates: start: 2018
  3. IMVEXXY [Suspect]
     Active Substance: ESTRADIOL
     Dosage: 10 ?G, 2X/WEEK ON TUESDAYS AND FRIDAYS BEFORE BED
     Route: 067
     Dates: end: 201905
  4. LOT OF UNSPECIFIED MEDICATIONS [Concomitant]

REACTIONS (6)
  - Weight increased [Not Recovered/Not Resolved]
  - Wound [Not Recovered/Not Resolved]
  - Rash [Recovering/Resolving]
  - Haemorrhage [Unknown]
  - Limb discomfort [Not Recovered/Not Resolved]
  - Off label use [Not Recovered/Not Resolved]

NARRATIVE: CASE EVENT DATE: 2018
